FAERS Safety Report 13983119 (Version 1)
Quarter: 2017Q3

REPORT INFORMATION
  Report Type: Spontaneous
  Country: EG (occurrence: EG)
  Receive Date: 20170918
  Receipt Date: 20170918
  Transmission Date: 20171128
  Serious: Yes (Death, Hospitalization, Disabling, Other)
  Sender: FDA-Public Use
  Company Number: None

PATIENT
  Sex: Male

DRUGS (1)
  1. INVOKANA [Suspect]
     Active Substance: CANAGLIFLOZIN

REACTIONS (9)
  - Acute kidney injury [None]
  - Fluid intake reduced [None]
  - Weight decreased [None]
  - Coma [None]
  - Hypophagia [None]
  - Abdominal pain [None]
  - Cardio-respiratory arrest [None]
  - Acidosis [None]
  - Diarrhoea [None]

NARRATIVE: CASE EVENT DATE: 20170903
